FAERS Safety Report 8586293-8 (Version None)
Quarter: 2012Q3

REPORT INFORMATION
  Report Type: 
  Country: None (occurrence: None)
  Receive Date: 20120730
  Receipt Date: 20120716
  Transmission Date: 20120928
  Serious: Yes (Death, Life-Threatening)
  Sender: FDA-Public Use
  Company Number: FR-008888

PATIENT
  Age: 67 Year
  Sex: Male

DRUGS (8)
  1. ATORVASTATIN [Concomitant]
  2. ASPIRIN [Concomitant]
  3. TENORMIN [Concomitant]
  4. ATHYMIL [Concomitant]
  5. THERALEN [Concomitant]
  6. FIRMAGON [Suspect]
     Indication: PROSTATE CANCER
     Dosage: SUBCUTANEOUS
     Route: 058
     Dates: start: 20120327, end: 20120327
  7. RAMIPRIL [Concomitant]
  8. GLUCOPHAGE [Concomitant]

REACTIONS (2)
  - SUPRAVENTRICULAR EXTRASYSTOLES [None]
  - CARDIAC ARREST [None]
